FAERS Safety Report 13950786 (Version 1)
Quarter: 2017Q3

REPORT INFORMATION
  Report Type: Spontaneous
  Country: US (occurrence: US)
  Receive Date: 20170908
  Receipt Date: 20170908
  Transmission Date: 20171128
  Serious: No
  Sender: FDA-Public Use
  Company Number: US-ROCHE-1133174

PATIENT

DRUGS (2)
  1. RITUXAN [Suspect]
     Active Substance: RITUXIMAB
     Dosage: IN 500CC NORMAL SALINE
     Route: 042
  2. RITUXAN [Suspect]
     Active Substance: RITUXIMAB
     Indication: MANTLE CELL LYMPHOMA
     Dosage: IN 50CC NORMAL SALINE AND 100CC NORMAL SALINE
     Route: 042
     Dates: start: 20010223

REACTIONS (4)
  - Fatigue [Unknown]
  - Oral disorder [Recovered/Resolved]
  - Candida infection [Recovered/Resolved]
  - Asthenia [Recovered/Resolved]
